FAERS Safety Report 10012935 (Version 1)
Quarter: 2014Q1

REPORT INFORMATION
  Report Type: Spontaneous
  Country: GB (occurrence: GB)
  Receive Date: 20140314
  Receipt Date: 20140314
  Transmission Date: 20141002
  Serious: Yes (Other)
  Sender: FDA-Public Use
  Company Number: GB-ALLERGAN-1404293US

PATIENT
  Age: 56 Year
  Sex: Female

DRUGS (1)
  1. OZURDEX [Suspect]
     Indication: RETINAL VEIN OCCLUSION
     Dosage: 0.7 MG, SINGLE
     Route: 031

REACTIONS (4)
  - Eye disorder [Unknown]
  - Complication of device insertion [Unknown]
  - Cataract [Unknown]
  - Intraocular pressure increased [Recovered/Resolved]
